FAERS Safety Report 8963404 (Version 1)
Quarter: 2012Q4

REPORT INFORMATION
  Report Type: 
  Country: CN (occurrence: CN)
  Receive Date: 20121213
  Receipt Date: 20121213
  Transmission Date: 20130627
  Serious: Yes (Hospitalization, Other)
  Sender: FDA-Public Use
  Company Number: PHHY2012CN109144

PATIENT
  Age: 25 Year
  Sex: Male
  Weight: 50 kg

DRUGS (1)
  1. SEBIVO [Suspect]
     Indication: HEPATITIS B
     Dosage: 600 mg, QD
     Route: 048
     Dates: start: 20080508, end: 20100115

REACTIONS (4)
  - Marasmus [Recovering/Resolving]
  - Blood creatine phosphokinase increased [Recovering/Resolving]
  - Muscle atrophy [Recovering/Resolving]
  - Muscular weakness [Recovering/Resolving]
